FAERS Safety Report 22060627 (Version 1)
Quarter: 2023Q1

REPORT INFORMATION
  Report Type: Spontaneous
  Country: US (occurrence: None)
  Receive Date: 20230303
  Receipt Date: 20230303
  Transmission Date: 20230418
  Serious: No
  Sender: FDA-Public Use
  Company Number: None

PATIENT
  Age: 8 Year
  Sex: Female
  Weight: 25.2 kg

DRUGS (2)
  1. VYVANSE [Suspect]
     Active Substance: LISDEXAMFETAMINE DIMESYLATE
     Indication: Attention deficit hyperactivity disorder
     Dosage: 1 CAPSULE ORAL
     Route: 048
     Dates: start: 20230208, end: 20230301
  2. GUANFACINE [Concomitant]
     Active Substance: GUANFACINE

REACTIONS (2)
  - Therapeutic product effect decreased [None]
  - Aggression [None]

NARRATIVE: CASE EVENT DATE: 20230220
